FAERS Safety Report 9486556 (Version 1)
Quarter: 2013Q3

REPORT INFORMATION
  Report Type: Spontaneous
  Country: FR (occurrence: FR)
  Receive Date: 20130829
  Receipt Date: 20130829
  Transmission Date: 20140515
  Serious: Yes (Other)
  Sender: FDA-Public Use
  Company Number: FR-MERCK-1308FRA009417

PATIENT
  Age: 61 Year
  Sex: Female

DRUGS (6)
  1. ESMERON [Suspect]
     Indication: INDUCTION OF ANAESTHESIA
     Dosage: 40 MG, ONCE
     Route: 042
     Dates: start: 20130523, end: 20130523
  2. KETAMINE HYDROCHLORIDE [Suspect]
     Indication: ANALGESIC THERAPY
     Dosage: 20 MG, QD
     Route: 042
     Dates: start: 20130523, end: 20130523
  3. DEXAMETHASONE SODIUM PHOSPHATE [Suspect]
     Indication: PROPHYLAXIS
     Dosage: 4 MG, QD
     Route: 042
     Dates: start: 20130523, end: 20130523
  4. DROLEPTAN [Suspect]
     Indication: PROPHYLAXIS
     Dosage: 1 MG, ONCE
     Route: 042
     Dates: start: 20130523, end: 20130523
  5. ULTIVA [Suspect]
     Indication: ANALGESIC THERAPY
     Dosage: UNK
     Route: 042
     Dates: start: 20130523, end: 20130523
  6. PROPOFOL LIPURO [Suspect]
     Indication: INDUCTION OF ANAESTHESIA
     Dosage: UNK
     Route: 042
     Dates: start: 20130523, end: 20130523

REACTIONS (4)
  - Rash [Recovered/Resolved]
  - Circulatory collapse [Recovered/Resolved]
  - Tachycardia [Recovered/Resolved]
  - Anaphylactic reaction [Recovered/Resolved]
